FAERS Safety Report 5952166-X (Version None)
Quarter: 2008Q4

REPORT INFORMATION
  Report Type: 
  Country: None (occurrence: None)
  Receive Date: 20081113
  Receipt Date: 20080731
  Transmission Date: 20090506
  Serious: No
  Sender: FDA-Public Use
  Company Number: A0740496A

PATIENT
  Age: 62 Year
  Sex: Male

DRUGS (5)
  1. COREG [Suspect]
     Dosage: 50MG TWICE PER DAY
     Route: 048
     Dates: start: 20060701, end: 20080301
  2. CARVEDILOL [Suspect]
     Dosage: 50MG TWICE PER DAY
     Route: 048
     Dates: start: 20080401
  3. LISINOPRIL [Concomitant]
  4. FUROSEMIDE [Concomitant]
  5. TIKOSYN [Concomitant]

REACTIONS (1)
  - FATIGUE [None]
